FAERS Safety Report 5818377-9 (Version None)
Quarter: 2008Q3

REPORT INFORMATION
  Report Type: 
  Country: None (occurrence: None)
  Receive Date: 20080718
  Receipt Date: 20080709
  Transmission Date: 20090109
  Serious: Yes (Death)
  Sender: FDA-Public Use
  Company Number: GXKR2008GB06408

PATIENT
  Age: 34 Year
  Sex: Female

DRUGS (6)
  1. CITALOPRAM HYDROBROMIDE [Suspect]
  2. CLOZAPINE [Suspect]
     Dosage: ORAL
     Route: 048
     Dates: start: 20051013
  3. COMBIVENT [Suspect]
  4. LANSOPRAZOLE [Suspect]
  5. LEVOTHYROXINE SODIUM [Suspect]
  6. THEOPHYLLINE [Suspect]

REACTIONS (3)
  - DEPRESSED LEVEL OF CONSCIOUSNESS [None]
  - OVERDOSE [None]
  - RESPIRATORY DEPRESSION [None]
